FAERS Safety Report 16986151 (Version 1)
Quarter: 2019Q4

REPORT INFORMATION
  Report Type: Spontaneous
  Country: US (occurrence: US)
  Receive Date: 20191103
  Receipt Date: 20191103
  Transmission Date: 20200122
  Serious: No
  Sender: FDA-Public Use
  Company Number: US-009507513-1910USA010992

PATIENT
  Age: 60 Year
  Sex: Male

DRUGS (2)
  1. SYLATRON [Suspect]
     Active Substance: PEGINTERFERON ALFA-2B
     Indication: PRODUCT USED FOR UNKNOWN INDICATION
     Dosage: UNK
     Route: 058
     Dates: end: 20190812
  2. PEGASYS [Suspect]
     Active Substance: PEGINTERFERON ALFA-2A
     Dosage: 28 MICROGRAM, EVERY WEEK

REACTIONS (3)
  - Product availability issue [Unknown]
  - Platelet count increased [Unknown]
  - Therapy non-responder [Unknown]

NARRATIVE: CASE EVENT DATE: 2019
